FAERS Safety Report 9144945 (Version 2)
Quarter: 2015Q2

REPORT INFORMATION
  Report Type: Spontaneous
  Country: SE (occurrence: SE)
  Receive Date: 20130307
  Receipt Date: 20150609
  Transmission Date: 20150821
  Serious: Yes (Hospitalization, Other)
  Sender: FDA-Public Use
  Company Number: SE-BIOGENIDEC-2013BI020689

PATIENT
  Age: 57 Year
  Sex: Male

DRUGS (4)
  1. DETRUSITOL FILMCOATED [Concomitant]
     Indication: PRODUCT USED FOR UNKNOWN INDICATION
  2. BISOPROLOL ACTAVIS [Concomitant]
     Active Substance: BISOPROLOL
  3. CITALOPRAM ACTAVIS FILM-COATED [Concomitant]
  4. TYSABRI [Suspect]
     Active Substance: NATALIZUMAB
     Indication: PRODUCT USED FOR UNKNOWN INDICATION
     Route: 042
     Dates: start: 20100528, end: 20120814

REACTIONS (3)
  - Thrombocytopenia [Not Recovered/Not Resolved]
  - Head injury [Unknown]
  - Adverse drug reaction [Unknown]
